FAERS Safety Report 12961510 (Version 2)
Quarter: 2016Q4

REPORT INFORMATION
  Report Type: Spontaneous
  Country: US (occurrence: US)
  Receive Date: 20161121
  Receipt Date: 20161205
  Transmission Date: 20170207
  Serious: Yes (Death, Hospitalization, Other)
  Sender: FDA-Public Use
  Company Number: US-009507513-1611USA007128

PATIENT
  Age: 66 Year
  Sex: Male

DRUGS (10)
  1. JAKAFI [Concomitant]
     Active Substance: RUXOLITINIB
  2. LIPITOR [Concomitant]
     Active Substance: ATORVASTATIN CALCIUM
  3. OXYCODONE [Concomitant]
     Active Substance: OXYCODONE
  4. INSULIN GLARGINE [Concomitant]
     Active Substance: INSULIN GLARGINE
     Dosage: 30 DF, AT MEALS AND AT NIGHT
     Route: 058
  5. OXYCONTIN [Concomitant]
     Active Substance: OXYCODONE HYDROCHLORIDE
  6. AMLODIPINE [Concomitant]
     Active Substance: AMLODIPINE BESYLATE
  7. KEYTRUDA [Suspect]
     Active Substance: PEMBROLIZUMAB
     Dosage: UNK
     Dates: start: 20160627
  8. CLONIDINE. [Concomitant]
     Active Substance: CLONIDINE
     Dosage: 0.2 MG, BID
     Route: 048
  9. KEYTRUDA [Suspect]
     Active Substance: PEMBROLIZUMAB
     Indication: NEUROENDOCRINE CARCINOMA OF THE SKIN
     Dosage: 100 ML, Q3W
     Route: 042
     Dates: start: 20160425
  10. TEMOZOLOMIDE. [Suspect]
     Active Substance: TEMOZOLOMIDE

REACTIONS (5)
  - Yellow skin [Unknown]
  - Malignant neoplasm progression [Unknown]
  - Death [Fatal]
  - Blood bilirubin increased [Unknown]
  - Hepatic pain [Unknown]

NARRATIVE: CASE EVENT DATE: 20160629
